FAERS Safety Report 5885705-8 (Version None)
Quarter: 2008Q3

REPORT INFORMATION
  Report Type: 
  Country: None (occurrence: None)
  Receive Date: 20080912
  Receipt Date: 20080903
  Transmission Date: 20090109
  Serious: Yes (Death)
  Sender: FDA-Public Use
  Company Number: 2008-02127

PATIENT
  Age: 57 Year
  Sex: Male
  Weight: 54 kg

DRUGS (7)
  1. VELCADE [Suspect]
     Indication: MULTIPLE MYELOMA
     Dosage: 1.7 MG, INTRAVENOUS
     Route: 042
     Dates: start: 20080526, end: 20080602
  2. OMEPRAZOLE [Concomitant]
  3. ALLOPURINOL [Concomitant]
  4. CALONAL (PARACETAMOL) [Concomitant]
  5. DIFLUCAN [Concomitant]
  6. SULFAMETHOXAZOLE AND TRIMETHOPRIM [Concomitant]
  7. FENTANYL-100 [Concomitant]

REACTIONS (7)
  - DEPRESSED LEVEL OF CONSCIOUSNESS [None]
  - DISEASE PROGRESSION [None]
  - PAIN [None]
  - RESPIRATORY DEPRESSION [None]
  - SOMNOLENCE [None]
  - TUMOUR LYSIS SYNDROME [None]
  - URINE OUTPUT DECREASED [None]
